FAERS Safety Report 7552144-3 (Version None)
Quarter: 2011Q2

REPORT INFORMATION
  Report Type: 
  Country: None (occurrence: None)
  Receive Date: 20110616
  Receipt Date: 20110602
  Transmission Date: 20111010
  Serious: Yes (Hospitalization, Other)
  Sender: FDA-Public Use
  Company Number: US-BAYER-2011-009722

PATIENT
  Age: 23 Year
  Sex: Female
  Weight: 90.703 kg

DRUGS (14)
  1. YAZ [Suspect]
     Indication: CONTRACEPTION
     Dosage: UNK
     Dates: start: 20080601, end: 20090130
  2. SINGULAIR [Concomitant]
     Dosage: UNK
     Dates: start: 20080901, end: 20081001
  3. IMITREX [Concomitant]
     Dosage: 100 MG, UNK
     Route: 048
     Dates: start: 20070622, end: 20081010
  4. YAZ [Suspect]
     Indication: PREMENSTRUAL SYNDROME
  5. TRINESSA [Concomitant]
  6. YASMIN [Concomitant]
  7. ADVAIR DISKUS 100/50 [Concomitant]
  8. TRI-SPRINTEC [Concomitant]
  9. SINGULAIR [Concomitant]
     Dosage: UNK
     Dates: start: 20080201, end: 20081001
  10. ALBUTEROL SULFATE AUTOHALER [Concomitant]
     Dosage: 90 ?G/ACT, INHALER, UNK
  11. PREDNISONE [Concomitant]
     Dosage: 10 MG, UNK
     Dates: start: 20081030
  12. XOPENEX [Concomitant]
     Dosage: INHALER
  13. ZYRTEC [Concomitant]
  14. YAZ [Suspect]

REACTIONS (4)
  - CHOLECYSTITIS ACUTE [None]
  - CHOLELITHIASIS [None]
  - GALLBLADDER DISORDER [None]
  - CHOLECYSTECTOMY [None]
